FAERS Safety Report 22633761 (Version 1)
Quarter: 2023Q2

REPORT INFORMATION
  Report Type: Other
  Country: DE (occurrence: None)
  Receive Date: 20230623
  Receipt Date: 20230623
  Transmission Date: 20230722
  Serious: Yes (Hospitalization, Other)
  Sender: FDA-Public Use
  Company Number: DE-Navinta LLC-000447

PATIENT
  Age: 65 Year
  Sex: Male

DRUGS (1)
  1. RIBAVIRIN [Suspect]
     Active Substance: RIBAVIRIN
     Indication: Hepatitis E
     Dosage: 1200 MG DAILY

REACTIONS (4)
  - Hepatitis E [Unknown]
  - Disease recurrence [Unknown]
  - Infection [Unknown]
  - Therapy partial responder [Unknown]
